FAERS Safety Report 5300139-2 (Version None)
Quarter: 2007Q1

REPORT INFORMATION
  Report Type: 
  Country: None (occurrence: None)
  Receive Date: 20070201
  Receipt Date: 20061010
  Transmission Date: 20070707
  Serious: No
  Sender: FDA-Public Use
  Company Number: 2006PV022924

PATIENT
  Age: 44 Year
  Sex: Female

DRUGS (3)
  1. BYETTA [Suspect]
     Indication: DIABETES MELLITUS NON-INSULIN-DEPENDENT
     Dosage: 5 MCG; QID; SC
     Route: 058
     Dates: start: 20060928
  2. LISINOPRIL [Concomitant]
  3. GLUCOTROL [Concomitant]

REACTIONS (9)
  - ACCIDENTAL EXPOSURE [None]
  - CHEST DISCOMFORT [None]
  - CONDITION AGGRAVATED [None]
  - FATIGUE [None]
  - FEELING ABNORMAL [None]
  - HEART RATE DECREASED [None]
  - HYPERSOMNIA [None]
  - SLUGGISHNESS [None]
  - VISION BLURRED [None]
